FAERS Safety Report 19101886 (Version 1)
Quarter: 2021Q2

REPORT INFORMATION
  Report Type: Spontaneous
  Country: US (occurrence: US)
  Receive Date: 20210407
  Receipt Date: 20210407
  Transmission Date: 20210717
  Serious: No
  Sender: FDA-Public Use
  Company Number: US-BRISTOL-MYERS SQUIBB COMPANY-BMS-2021-031636

PATIENT
  Sex: Female

DRUGS (1)
  1. OPDIVO [Suspect]
     Active Substance: NIVOLUMAB
     Indication: RENAL NEOPLASM
     Dosage: 240 MILLIGRAM, Q2WK
     Route: 042
     Dates: start: 2020

REACTIONS (2)
  - Product administration error [Unknown]
  - Product preparation issue [Unknown]

NARRATIVE: CASE EVENT DATE: 20210330
